FAERS Safety Report 20985832 (Version 1)
Quarter: 2022Q2

REPORT INFORMATION
  Report Type: Spontaneous
  Country: US (occurrence: None)
  Receive Date: 20220621
  Receipt Date: 20220621
  Transmission Date: 20220721
  Serious: Yes (Death, Hospitalization, Other)
  Sender: FDA-Public Use
  Company Number: US-MICRO LABS LIMITED-ML2022-02787

PATIENT
  Age: 34 Year
  Sex: Female

DRUGS (3)
  1. DIPHENHYDRAMINE HYDROCHLORIDE [Suspect]
     Active Substance: DIPHENHYDRAMINE HYDROCHLORIDE
     Dosage: OXYCODONE AND DIPHENHYDRAMINE (CRUSHED) TO SELF-ADMINISTER THROUGH HER PERIPHERAL INTRAVENOUS LINE
  2. HYDROMORPHONE [Suspect]
     Active Substance: HYDROMORPHONE
  3. OXYCODONE [Suspect]
     Active Substance: OXYCODONE
     Dosage: OXYCODONE AND DIPHENHYDRAMINE (CRUSHED) TO SELF-ADMINISTER THROUGH HER PERIPHERAL INTRAVENOUS LINE

REACTIONS (11)
  - Secondary amyloidosis [Fatal]
  - Intentional product misuse [Fatal]
  - Drug abuse [Fatal]
  - Incorrect route of product administration [Fatal]
  - Sepsis [Fatal]
  - Wrong technique in product usage process [Fatal]
  - Renal failure [Fatal]
  - Hypothyroidism [Fatal]
  - Lung disorder [Fatal]
  - Vomiting [Fatal]
  - Nausea [Fatal]
